FAERS Safety Report 7003685-9 (Version None)
Quarter: 2010Q3

REPORT INFORMATION
  Report Type: 
  Country: None (occurrence: None)
  Receive Date: 20100917
  Receipt Date: 20100910
  Transmission Date: 20110219
  Serious: Yes (Other)
  Sender: FDA-Public Use
  Company Number: CRC-10-149

PATIENT
  Age: 56 Year
  Sex: Female

DRUGS (1)
  1. PHENYTOIN SODIUM [Suspect]
     Dosage: 1 CAP QID ORALLY
     Route: 048
     Dates: start: 20100805, end: 20100820

REACTIONS (2)
  - ANTICONVULSANT DRUG LEVEL INCREASED [None]
  - PRODUCT SUBSTITUTION ISSUE [None]
